FAERS Safety Report 25090270 (Version 2)
Quarter: 2025Q2

REPORT INFORMATION
  Report Type: Spontaneous
  Country: FR (occurrence: FR)
  Receive Date: 20250318
  Receipt Date: 20250401
  Transmission Date: 20250717
  Serious: Yes (Life-Threatening, Hospitalization, Other)
  Sender: ALKEM
  Company Number: None

PATIENT
  Age: 53 Year
  Sex: Female

DRUGS (3)
  1. MYCOPHENOLATE MOFETIL [Suspect]
     Active Substance: MYCOPHENOLATE MOFETIL
     Indication: Immunosuppressant drug therapy
     Dosage: 1500 MILLIGRAM, QD (EVERY 1 DAY)
     Route: 065
  2. TACROLIMUS [Suspect]
     Active Substance: TACROLIMUS
     Indication: Immunosuppressant drug therapy
     Dosage: 7 MILLIGRAM, QD (EVERY 1 DAY)
     Route: 065
  3. PREDNISOLONE [Suspect]
     Active Substance: PREDNISOLONE
     Indication: Immunosuppressant drug therapy
     Dosage: 7.5 MILLIGRAM, QD (EVERY 1 DAY)
     Route: 065

REACTIONS (8)
  - Blood 1,25-dihydroxycholecalciferol increased [Recovered/Resolved]
  - Acute kidney injury [Unknown]
  - Hypercalcaemia [Recovered/Resolved]
  - Pneumocystis jirovecii pneumonia [Recovered/Resolved]
  - Anaemia [Unknown]
  - Bacterial disease carrier [Unknown]
  - Metapneumovirus infection [Unknown]
  - Transplant rejection [Unknown]
